FAERS Safety Report 5469518-7 (Version None)
Quarter: 2007Q3

REPORT INFORMATION
  Report Type: 
  Country: None (occurrence: None)
  Receive Date: 20070927
  Receipt Date: 20070920
  Transmission Date: 20080115
  Serious: Yes (Hospitalization)
  Sender: FDA-Public Use
  Company Number: A0684410A

PATIENT
  Age: 69 Year
  Sex: Female
  Weight: 82.3 kg

DRUGS (3)
  1. COREG [Suspect]
     Route: 048
     Dates: start: 20050401, end: 20050101
  2. CARDIZEM [Concomitant]
     Route: 065
  3. UNSPECIFIED MEDICATIONS [Concomitant]

REACTIONS (4)
  - DYSPNOEA [None]
  - OEDEMA PERIPHERAL [None]
  - SWELLING [None]
  - SWELLING FACE [None]
